FAERS Safety Report 9229062 (Version 2)
Quarter: 2013Q2

REPORT INFORMATION
  Report Type: Spontaneous
  Country: JP (occurrence: JP)
  Receive Date: 20130412
  Receipt Date: 20130627
  Transmission Date: 20140414
  Serious: Yes (Other)
  Sender: FDA-Public Use
  Company Number: JP-ASTRAZENECA-2013SE22730

PATIENT
  Age: 59 Year
  Sex: Female
  Weight: 51 kg

DRUGS (4)
  1. ANAPEINE [Suspect]
     Indication: PAIN
     Dosage: CONTINUOUS DOSING OF 0.225% AT 2 ML/HR FOR 24 HOURS
     Route: 008
     Dates: start: 20130214, end: 20130218
  2. XYLOCAINE [Concomitant]
     Dosage: DOSE UNKNOWN
     Route: 065
  3. DECADRON [Concomitant]
     Dosage: DOSE UNKNOWN
     Route: 065
  4. OMNIPAQUE 240 [Concomitant]
     Dosage: DOSE UNKNOWN
     Route: 042

REACTIONS (1)
  - Radiculopathy [Not Recovered/Not Resolved]
